FAERS Safety Report 4442282-6 (Version None)
Quarter: 2004Q3

REPORT INFORMATION
  Report Type: 
  Country: None (occurrence: None)
  Receive Date: 20040903
  Receipt Date: 20040719
  Transmission Date: 20050211
  Serious: Yes (Other)
  Sender: FDA-Public Use
  Company Number: 2004UW15011

PATIENT
  Age: 78 Year
  Sex: Female
  Weight: 81.6475 kg

DRUGS (10)
  1. CRESTOR [Suspect]
     Indication: BLOOD CHOLESTEROL INCREASED
     Dosage: 10 MG QD PO
     Route: 048
     Dates: start: 20040201
  2. ACTOS [Concomitant]
  3. ASPIRIN [Concomitant]
  4. PROBENECID [Concomitant]
  5. DEMADEX [Concomitant]
  6. POTASSIUM CHLORIDE [Concomitant]
  7. LEVOXYL [Concomitant]
  8. LOTREL [Concomitant]
  9. CIMETIDINE [Concomitant]
  10. INSULIN [Concomitant]

REACTIONS (4)
  - ALOPECIA [None]
  - ASTHENIA [None]
  - HEADACHE [None]
  - SOMNOLENCE [None]
